FAERS Safety Report 12519896 (Version 2)
Quarter: 2016Q3

REPORT INFORMATION
  Report Type: Report from Study
  Country: US (occurrence: US)
  Receive Date: 20160630
  Receipt Date: 20160729
  Transmission Date: 20161109
  Serious: Yes (Hospitalization)
  Sender: FDA-Public Use
  Company Number: US-ABBVIE-16K-163-1619326-00

PATIENT
  Age: 22 Year
  Sex: Male

DRUGS (1)
  1. HUMIRA [Suspect]
     Active Substance: ADALIMUMAB
     Indication: ANKYLOSING SPONDYLITIS
     Route: 058
     Dates: start: 20160412

REACTIONS (17)
  - Neck pain [Unknown]
  - Arthritis [Unknown]
  - Therapeutic response unexpected [Recovering/Resolving]
  - Drug ineffective [Recovering/Resolving]
  - Joint swelling [Unknown]
  - Inflammation [Unknown]
  - Back pain [Unknown]
  - Arthralgia [Unknown]
  - General physical health deterioration [Unknown]
  - Musculoskeletal stiffness [Unknown]
  - Joint range of motion decreased [Unknown]
  - Pre-existing condition improved [Recovering/Resolving]
  - Pain [Unknown]
  - Local swelling [Unknown]
  - Dysstasia [Unknown]
  - Drug dose omission [Unknown]
  - Asthenia [Unknown]

NARRATIVE: CASE EVENT DATE: 2016
